FAERS Safety Report 4589665-1 (Version None)
Quarter: 2005Q1

REPORT INFORMATION
  Report Type: 
  Country: None (occurrence: None)
  Receive Date: 20050223
  Receipt Date: 20050214
  Transmission Date: 20050727
  Serious: Yes (Hospitalization)
  Sender: FDA-Public Use
  Company Number: FR-ROCHE-395215

PATIENT
  Age: 36 Year
  Sex: Female
  Weight: 54 kg

DRUGS (6)
  1. VALIUM [Suspect]
     Route: 048
     Dates: start: 20041201, end: 20041216
  2. DEPAKOTE [Suspect]
     Indication: DRUG USE FOR UNKNOWN INDICATION
     Route: 048
     Dates: start: 20041208, end: 20041216
  3. ZYPREXA [Suspect]
     Route: 048
     Dates: start: 20041210, end: 20041216
  4. IMOVANE [Suspect]
     Indication: DRUG USE FOR UNKNOWN INDICATION
     Route: 048
     Dates: start: 20041128, end: 20041216
  5. DEROXAT [Concomitant]
     Route: 048
     Dates: start: 20041203, end: 20041207
  6. TERCIAN [Concomitant]
     Dates: start: 20041128, end: 20041130

REACTIONS (6)
  - COMA [None]
  - ENCEPHALOPATHY [None]
  - FALL [None]
  - HYPOTONIA [None]
  - MANIA [None]
  - SEDATION [None]
